FAERS Safety Report 6648714-7 (Version None)
Quarter: 2010Q1

REPORT INFORMATION
  Report Type: 
  Country: None (occurrence: None)
  Receive Date: 20100324
  Receipt Date: 20100310
  Transmission Date: 20100710
  Serious: Yes (Other)
  Sender: FDA-Public Use
  Company Number: PHHY2010US07122

PATIENT
  Sex: Male

DRUGS (5)
  1. GLEEVEC [Suspect]
     Indication: CHRONIC MYELOID LEUKAEMIA
     Dosage: 400 MG, QD
     Route: 048
     Dates: start: 20081101
  2. GLEEVEC [Suspect]
     Dosage: 400 MG, BID
     Route: 048
     Dates: start: 20100206
  3. LISINOPRIL AND HYDROCHLOROTHIAZIDE [Concomitant]
  4. LIPITOR [Concomitant]
  5. METFORMIN HCL [Concomitant]

REACTIONS (5)
  - DIARRHOEA [None]
  - IMMUNOSUPPRESSION [None]
  - RASH [None]
  - THERAPEUTIC RESPONSE UNEXPECTED [None]
  - UPPER RESPIRATORY TRACT INFECTION [None]
